FAERS Safety Report 9368820 (Version 2)
Quarter: 2013Q3

REPORT INFORMATION
  Report Type: Spontaneous
  Country: US (occurrence: US)
  Receive Date: 20130626
  Receipt Date: 20130805
  Transmission Date: 20140515
  Serious: No
  Sender: FDA-Public Use
  Company Number: US-B.I. PHARMACEUTICALS,INC./RIDGEFIELD-2013-BI-17485BP

PATIENT
  Sex: Male
  Weight: 91 kg

DRUGS (2)
  1. COMBIVENT [Suspect]
     Indication: CHRONIC OBSTRUCTIVE PULMONARY DISEASE
     Dosage: STRENGTH: 20 MCG / 100 MCG;
     Route: 055
     Dates: start: 20130525
  2. COMBIVENT [Suspect]
     Indication: CHRONIC OBSTRUCTIVE PULMONARY DISEASE
     Dosage: STRENGTH: 18 MCG / 103 MCG;
     Route: 055
     Dates: start: 2003, end: 20130524

REACTIONS (9)
  - Dry throat [Not Recovered/Not Resolved]
  - Throat irritation [Not Recovered/Not Resolved]
  - Throat irritation [Not Recovered/Not Resolved]
  - Dry throat [Not Recovered/Not Resolved]
  - Throat irritation [Not Recovered/Not Resolved]
  - Throat irritation [Not Recovered/Not Resolved]
  - Medication error [Unknown]
  - Product quality issue [Recovered/Resolved]
  - Product quality issue [Recovered/Resolved]
